FAERS Safety Report 5370061-4 (Version None)
Quarter: 2007Q2

REPORT INFORMATION
  Report Type: 
  Country: None (occurrence: None)
  Receive Date: 20070613
  Receipt Date: 20060309
  Transmission Date: 20071010
  Serious: Yes (Hospitalization)
  Sender: FDA-Public Use
  Company Number: 23100260

PATIENT
  Age: 76 Year
  Sex: Male

DRUGS (3)
  1. ARGATROBAN [Suspect]
     Indication: HEPARIN-INDUCED THROMBOCYTOPENIA
     Dosage: 0.5 MCG/KG/MIN CONT IV
     Route: 042
     Dates: start: 20060308, end: 20060309
  2. HEPARIN [Concomitant]
  3. AMICAR [Concomitant]

REACTIONS (1)
  - HAEMORRHAGE [None]
